FAERS Safety Report 9264624 (Version 2)
Quarter: 2013Q2

REPORT INFORMATION
  Report Type: Spontaneous
  Country: US (occurrence: US)
  Receive Date: 20130501
  Receipt Date: 20130620
  Transmission Date: 20140414
  Serious: Yes (Hospitalization, Other)
  Sender: FDA-Public Use
  Company Number: US-BIOGENIDEC-2013BI038338

PATIENT
  Age: 51 Year
  Sex: Female

DRUGS (1)
  1. AVONEX [Suspect]
     Indication: MULTIPLE SCLEROSIS
     Route: 030
     Dates: start: 20120313

REACTIONS (13)
  - Osteoarthritis [Recovered/Resolved]
  - Procedural haemorrhage [Recovered/Resolved]
  - Blood pressure increased [Unknown]
  - Blood iron decreased [Unknown]
  - Fall [Recovered/Resolved]
  - Abasia [Recovered/Resolved]
  - Tension [Not Recovered/Not Resolved]
  - Injection site bruising [Unknown]
  - Carpal tunnel syndrome [Not Recovered/Not Resolved]
  - Muscle spasms [Not Recovered/Not Resolved]
  - Headache [Not Recovered/Not Resolved]
  - Paraesthesia [Not Recovered/Not Resolved]
  - Fatigue [Not Recovered/Not Resolved]
